FAERS Safety Report 5444419-9 (Version None)
Quarter: 2007Q3

REPORT INFORMATION
  Report Type: 
  Country: None (occurrence: None)
  Receive Date: 20070906
  Receipt Date: 20070831
  Transmission Date: 20080115
  Serious: Yes (Hospitalization)
  Sender: FDA-Public Use
  Company Number: PHFR2007GB02610

PATIENT
  Sex: Female

DRUGS (1)
  1. NEORAL [Suspect]
     Indication: PSORIASIS
     Route: 065

REACTIONS (3)
  - INTESTINAL RESECTION [None]
  - POST PROCEDURAL HAEMATOMA [None]
  - ROAD TRAFFIC ACCIDENT [None]
